FAERS Safety Report 17440942 (Version 1)
Quarter: 2020Q1

REPORT INFORMATION
  Report Type: Other
  Country: CA (occurrence: CA)
  Receive Date: 20200220
  Receipt Date: 20200220
  Transmission Date: 20200409
  Serious: Yes (Life-Threatening, Hospitalization, Other)
  Sender: FDA-Public Use
  Company Number: CA-APOTEX-2020AP007667

PATIENT
  Age: 80 Year
  Sex: Female
  Weight: 90 kg

DRUGS (1)
  1. DICLOFENAC [Suspect]
     Active Substance: DICLOFENAC
     Indication: FIBROMYALGIA
     Dosage: UNK
     Route: 048

REACTIONS (1)
  - Anaphylactic reaction [Recovered/Resolved]
